FAERS Safety Report 15088659 (Version 1)
Quarter: 2018Q2

REPORT INFORMATION
  Report Type: Spontaneous
  Country: JP (occurrence: JP)
  Receive Date: 20180629
  Receipt Date: 20180629
  Transmission Date: 20180711
  Serious: Yes (Hospitalization)
  Sender: FDA-Public Use
  Company Number: JP-ALK-ABELLO A/S-2018AA001678

PATIENT

DRUGS (4)
  1. MITICURE MITE SUBLINGUAL TABLET [Suspect]
     Active Substance: DERMATOPHAGOIDES FARINAE\DERMATOPHAGOIDES PTERONYSSINUS
     Dosage: 10000 JAU, QD
     Route: 060
     Dates: start: 20180424, end: 20180602
  2. ONON [Concomitant]
     Active Substance: PRANLUKAST
     Indication: RHINITIS PERENNIAL
     Route: 048
  3. MITICURE MITE SUBLINGUAL TABLET [Suspect]
     Active Substance: DERMATOPHAGOIDES FARINAE\DERMATOPHAGOIDES PTERONYSSINUS
     Indication: RHINITIS ALLERGIC
     Dosage: 3300 JAU, QD
     Route: 060
     Dates: start: 20180417, end: 20180423
  4. ALLEGRA                            /01314201/ [Concomitant]
     Indication: RHINITIS PERENNIAL
     Route: 048

REACTIONS (9)
  - Laryngeal oedema [Recovered/Resolved]
  - Wheezing [Recovered/Resolved]
  - Dysphonia [Recovering/Resolving]
  - Dyspnoea [Recovered/Resolved]
  - Anaphylactic reaction [Recovered/Resolved]
  - Eye pruritus [Recovered/Resolved]
  - Conjunctival hyperaemia [Recovered/Resolved]
  - Oropharyngeal pain [Unknown]
  - Cough [Recovered/Resolved]

NARRATIVE: CASE EVENT DATE: 20180417
